FAERS Safety Report 9251178 (Version 2)
Quarter: 2013Q2

REPORT INFORMATION
  Report Type: Spontaneous
  Country: JP (occurrence: JP)
  Receive Date: 20130424
  Receipt Date: 20130508
  Transmission Date: 20140414
  Serious: Yes (Death)
  Sender: FDA-Public Use
  Company Number: JP-NOVOPROD-376025

PATIENT
  Age: 73 Year
  Sex: 0
  Weight: 60 kg

DRUGS (3)
  1. NOVOSEVEN HI [Suspect]
     Indication: INJURY
     Dosage: 5 MG, QD
     Route: 042
     Dates: start: 20130415, end: 20130415
  2. WARFARIN [Concomitant]
     Indication: HAEMORRHAGE
     Route: 065
  3. PLASMA [Concomitant]
     Indication: HAEMORRHAGE
     Dosage: UNK
     Route: 065

REACTIONS (1)
  - Haemorrhage [Fatal]
